FAERS Safety Report 9385164 (Version 2)
Quarter: 2013Q4

REPORT INFORMATION
  Report Type: Spontaneous
  Country: GB (occurrence: GB)
  Receive Date: 20130705
  Receipt Date: 20131126
  Transmission Date: 20140711
  Serious: Yes (Other)
  Sender: FDA-Public Use
  Company Number: GB-B.I. PHARMACEUTICALS,INC./RIDGEFIELD-2013-UK-01345UK

PATIENT
  Age: 74 Year
  Sex: Male
  Weight: 69 kg

DRUGS (11)
  1. PRADAXA [Suspect]
     Indication: ATRIAL FIBRILLATION
     Dosage: 220 MG
     Dates: start: 20130607
  2. DESLORATADINE [Concomitant]
     Dates: start: 20130218
  3. DOXAZOSIN [Concomitant]
     Dates: start: 20130325
  4. ENALAPRIL [Concomitant]
     Dates: start: 20130218
  5. INDAPAMIDE [Concomitant]
     Dates: start: 20130218
  6. ISOSORBIDE MONONITRATE [Concomitant]
     Dates: start: 20130218
  7. METFORMIN [Concomitant]
     Dates: start: 20130218
  8. PULMICORT [Concomitant]
     Dates: start: 20130509
  9. ROSUVASTATIN [Concomitant]
     Dates: start: 20130218
  10. TILDIEM [Concomitant]
     Dates: start: 20130218
  11. VENTOLIN [Concomitant]
     Dates: start: 20130403

REACTIONS (1)
  - Erectile dysfunction [Recovered/Resolved]
